FAERS Safety Report 12251978 (Version 2)
Quarter: 2016Q2

REPORT INFORMATION
  Report Type: Spontaneous
  Country: US (occurrence: US)
  Receive Date: 20160411
  Receipt Date: 20160422
  Transmission Date: 20160815
  Serious: Yes (Other)
  Sender: FDA-Public Use
  Company Number: US-BEH-2016060973

PATIENT
  Age: 72 Year
  Sex: Female
  Weight: 90 kg

DRUGS (24)
  1. DIPHENHYDRAMINE. [Concomitant]
     Active Substance: DIPHENHYDRAMINE
  2. KLOR-CON [Concomitant]
     Active Substance: POTASSIUM CHLORIDE
  3. HIZENTRA [Suspect]
     Active Substance: HUMAN IMMUNOGLOBULIN G
     Indication: IMMUNODEFICIENCY COMMON VARIABLE
     Dosage: START DATE: ??-???-2011
     Route: 058
  4. PREDNISONE. [Concomitant]
     Active Substance: PREDNISONE
  5. AZITHROMYCIN ANHYDROUS. [Concomitant]
     Active Substance: AZITHROMYCIN ANHYDROUS
  6. XANAX [Concomitant]
     Active Substance: ALPRAZOLAM
  7. OXYGEN. [Concomitant]
     Active Substance: OXYGEN
  8. EPIPEN [Concomitant]
     Active Substance: EPINEPHRINE
  9. BUDESONIDE. [Concomitant]
     Active Substance: BUDESONIDE
  10. LEXAPRO [Concomitant]
     Active Substance: ESCITALOPRAM OXALATE
  11. STOOL SOFTENER [Concomitant]
     Active Substance: DOCUSATE CALCIUM
  12. IPRATROPIUM BR [Concomitant]
  13. LIDOCAINE. [Concomitant]
     Active Substance: LIDOCAINE
  14. MIRALAX [Concomitant]
     Active Substance: POLYETHYLENE GLYCOL 3350
  15. OMEPRAZOLE. [Concomitant]
     Active Substance: OMEPRAZOLE
  16. POTASSIUM [Concomitant]
     Active Substance: POTASSIUM
  17. PERCOCET [Concomitant]
     Active Substance: ACETAMINOPHEN\OXYCODONE HYDROCHLORIDE
  18. PROAIR HFA [Concomitant]
     Active Substance: ALBUTEROL SULFATE
  19. GABAPENTIN. [Concomitant]
     Active Substance: GABAPENTIN
  20. FUROSEMIDE. [Concomitant]
     Active Substance: FUROSEMIDE
  21. MAXZIDE [Concomitant]
     Active Substance: HYDROCHLOROTHIAZIDE\TRIAMTERENE
  22. SODIUM CHLORIDE. [Concomitant]
     Active Substance: SODIUM CHLORIDE
  23. MULTIPLE VITAMIN [Concomitant]
     Active Substance: VITAMINS
  24. FISH OIL [Concomitant]
     Active Substance: FISH OIL

REACTIONS (1)
  - Lung infection [Recovered/Resolved]

NARRATIVE: CASE EVENT DATE: 201603
